FAERS Safety Report 6420210-1 (Version None)
Quarter: 2009Q4

REPORT INFORMATION
  Report Type: 
  Country: None (occurrence: None)
  Receive Date: 20091029
  Receipt Date: 20091016
  Transmission Date: 20100525
  Serious: Yes (Other)
  Sender: FDA-Public Use
  Company Number: PHHY2009CA45187

PATIENT
  Sex: Female

DRUGS (5)
  1. DIOVAN [Suspect]
     Dosage: 160 MG
     Route: 048
  2. DIOVAN [Suspect]
     Dosage: 80 MG, BID
     Route: 048
  3. NORVASC [Concomitant]
     Dosage: 10 MG, UNK
  4. RANITIDINE [Concomitant]
  5. OMEPRAZOLE [Concomitant]
     Dosage: 20 MG, BID

REACTIONS (10)
  - ABDOMINAL DISCOMFORT [None]
  - BRAIN NEOPLASM [None]
  - CONSTIPATION [None]
  - DIZZINESS [None]
  - HEADACHE [None]
  - LOSS OF CONSCIOUSNESS [None]
  - MALAISE [None]
  - OEDEMA PERIPHERAL [None]
  - OSTEOARTHRITIS [None]
  - RENAL CYST [None]
